FAERS Safety Report 14986162 (Version 3)
Quarter: 2018Q3

REPORT INFORMATION
  Report Type: Spontaneous
  Country: US (occurrence: US)
  Receive Date: 20180607
  Receipt Date: 20180724
  Transmission Date: 20181010
  Serious: Yes (Life-Threatening, Hospitalization, Other)
  Sender: FDA-Public Use
  Company Number: US-ALLERGAN-1829691US

PATIENT
  Age: 24 Year
  Sex: Male

DRUGS (11)
  1. TRAZODONE [Suspect]
     Active Substance: TRAZODONE HYDROCHLORIDE
     Indication: PRODUCT USED FOR UNKNOWN INDICATION
     Dosage: 50 MG, UNK
     Route: 048
  2. BUPROPION. [Suspect]
     Active Substance: BUPROPION
     Indication: PRODUCT USED FOR UNKNOWN INDICATION
     Dosage: 150 MG, UNK
     Route: 048
  3. BUPROPION. [Suspect]
     Active Substance: BUPROPION
     Dosage: 100 MG, UNK
     Route: 048
  4. RISPERIDONE. [Suspect]
     Active Substance: RISPERIDONE
     Indication: SCHIZOAFFECTIVE DISORDER
     Dosage: 3 MG, UNK
     Route: 048
  5. CYPROHEPTADINE. [Suspect]
     Active Substance: CYPROHEPTADINE
     Dosage: 2 MG, Q2HR, AS NEEDED
     Route: 065
  6. OLANZAPINE. [Suspect]
     Active Substance: OLANZAPINE
     Dosage: 5 MG, UNK
     Route: 048
  7. OLANZAPINE. [Suspect]
     Active Substance: OLANZAPINE
     Indication: SCHIZOAFFECTIVE DISORDER
     Dosage: 10 MG, UNK
     Route: 048
  8. CYPROHEPTADINE. [Suspect]
     Active Substance: CYPROHEPTADINE
     Indication: INSOMNIA
     Dosage: 4 MG, UNK
     Route: 048
  9. CYPROHEPTADINE. [Suspect]
     Active Substance: CYPROHEPTADINE
     Dosage: 12 MG, UNK
     Route: 065
  10. CYPROHEPTADINE. [Suspect]
     Active Substance: CYPROHEPTADINE
     Dosage: 12 MG, SINGLE
     Route: 065
  11. FLUOXETINE HCL UNK [Suspect]
     Active Substance: FLUOXETINE HYDROCHLORIDE
     Indication: DEPRESSION
     Dosage: 20 MG, UNK
     Route: 048

REACTIONS (11)
  - Serotonin syndrome [Recovered/Resolved]
  - Electrocardiogram QT prolonged [Unknown]
  - Pneumonia aspiration [Unknown]
  - Hypotension [Recovered/Resolved]
  - Acute kidney injury [Recovered/Resolved]
  - Rhabdomyolysis [Recovered/Resolved]
  - Intentional overdose [Recovered/Resolved]
  - Pupil fixed [Recovered/Resolved]
  - Symptom masked [Recovered/Resolved]
  - Miosis [Recovered/Resolved]
  - Liver function test abnormal [Recovered/Resolved]
